FAERS Safety Report 10226144 (Version 3)
Quarter: 2014Q3

REPORT INFORMATION
  Report Type: Spontaneous
  Country: US (occurrence: US)
  Receive Date: 20140609
  Receipt Date: 20140725
  Transmission Date: 20150326
  Serious: Yes (Other)
  Sender: FDA-Public Use
  Company Number: US-BAYER-2014-085557

PATIENT
  Age: 22 Year
  Sex: Female
  Weight: 58 kg

DRUGS (1)
  1. MIRENA [Suspect]
     Active Substance: LEVONORGESTREL
     Dosage: 20 MCG/24HR, CONT
     Route: 015
     Dates: start: 20140508, end: 20140605

REACTIONS (5)
  - Embedded device [Recovered/Resolved]
  - Procedural pain [None]
  - Vaginal haemorrhage [None]
  - Post procedural discomfort [None]
  - Post procedural haemorrhage [None]

NARRATIVE: CASE EVENT DATE: 201405
